FAERS Safety Report 10205570 (Version 1)
Quarter: 2014Q2

REPORT INFORMATION
  Report Type: Spontaneous
  Country: FR (occurrence: FR)
  Receive Date: 20140529
  Receipt Date: 20140529
  Transmission Date: 20141212
  Serious: Yes (Hospitalization)
  Sender: FDA-Public Use
  Company Number: FR-TAKEDA-2014TUS004225

PATIENT
  Age: 75 Year
  Sex: Female
  Weight: 74 kg

DRUGS (14)
  1. ADENURIC [Suspect]
     Indication: GOUT
     Dosage: 80 MG, QD
     Route: 048
     Dates: end: 201402
  2. ADENURIC [Suspect]
     Indication: DIARRHOEA
     Dosage: 80 MG, QD
     Route: 048
     Dates: start: 20140302, end: 20140306
  3. TIORFAN [Suspect]
     Indication: DIARRHOEA
     Dosage: 100 MG, QD
     Route: 048
     Dates: start: 20140226, end: 20140226
  4. TIORFAN [Suspect]
     Dosage: 200 MG, QD
     Route: 048
     Dates: start: 20140306, end: 20140306
  5. KINERET [Suspect]
     Indication: GOUT
     Dosage: 100 MG, QD
     Route: 058
     Dates: start: 20140304, end: 20140306
  6. DARBEPOETIN ALFA [Concomitant]
     Indication: PRODUCT USED FOR UNKNOWN INDICATION
  7. LEXOMIL [Concomitant]
     Indication: PRODUCT USED FOR UNKNOWN INDICATION
     Route: 048
  8. FLAGYL                             /00012501/ [Concomitant]
     Indication: PRODUCT USED FOR UNKNOWN INDICATION
  9. CALCIPARINE [Concomitant]
     Indication: PRODUCT USED FOR UNKNOWN INDICATION
  10. LOXEN [Concomitant]
     Indication: HYPERTENSION
  11. LEVOTHYROX [Concomitant]
     Indication: PRODUCT USED FOR UNKNOWN INDICATION
  12. BISOPROLOL [Concomitant]
     Indication: HYPERTENSION
  13. ALPRESS [Concomitant]
     Indication: HYPERTENSION
  14. TAHOR [Concomitant]
     Indication: HYPERLIPIDAEMIA

REACTIONS (1)
  - Dermatitis exfoliative [Recovered/Resolved]
